FAERS Safety Report 13846146 (Version 1)
Quarter: 2017Q3

REPORT INFORMATION
  Report Type: Spontaneous
  Country: US (occurrence: US)
  Receive Date: 20170808
  Receipt Date: 20170808
  Transmission Date: 20171127
  Serious: No
  Sender: FDA-Public Use
  Company Number: US-ROCHE-743465

PATIENT
  Age: 65 Year
  Sex: Male

DRUGS (1)
  1. BONIVA [Suspect]
     Active Substance: IBANDRONATE SODIUM
     Indication: PRODUCT USED FOR UNKNOWN INDICATION
     Route: 065

REACTIONS (6)
  - Tremor [Unknown]
  - Musculoskeletal pain [Unknown]
  - Influenza [Unknown]
  - Muscle twitching [Unknown]
  - Medication error [Unknown]
  - Nausea [Unknown]

NARRATIVE: CASE EVENT DATE: 20101118
